FAERS Safety Report 7520006-3 (Version None)
Quarter: 2011Q2

REPORT INFORMATION
  Report Type: 
  Country: None (occurrence: None)
  Receive Date: 20110602
  Receipt Date: 20110520
  Transmission Date: 20111010
  Serious: Yes (Hospitalization, Other)
  Sender: FDA-Public Use
  Company Number: PHHY2011BE05799

PATIENT
  Sex: Male

DRUGS (2)
  1. AFINITOR [Suspect]
     Indication: RENAL CELL CARCINOMA
     Dosage: 5 MG, QD
     Route: 048
     Dates: start: 20101208
  2. AFINITOR [Suspect]
     Dosage: 10 MG, QD
     Route: 048
     Dates: end: 20110112

REACTIONS (15)
  - FATIGUE [None]
  - HAEMOPHILUS TEST POSITIVE [None]
  - ORTHOPNOEA [None]
  - CHEST DISCOMFORT [None]
  - INTERSTITIAL LUNG DISEASE [None]
  - DYSPNOEA [None]
  - PLEURAL EFFUSION [None]
  - PROTEINURIA [None]
  - HAEMOPTYSIS [None]
  - CREPITATIONS [None]
  - HYPOXIA [None]
  - OEDEMA PERIPHERAL [None]
  - WHEEZING [None]
  - COUGH [None]
  - CYANOSIS [None]
